FAERS Safety Report 7271543-0 (Version None)
Quarter: 2011Q1

REPORT INFORMATION
  Report Type: 
  Country: None (occurrence: None)
  Receive Date: 20110128
  Receipt Date: 20110128
  Transmission Date: 20110831
  Serious: No
  Sender: FDA-Public Use
  Company Number: None

PATIENT
  Age: 7 Year
  Sex: Male
  Weight: 17.5 kg

DRUGS (3)
  1. SODIUM FLUORIDE 0.5MG CHEW [Suspect]
     Indication: DENTAL CARIES
     Dosage: 0.5 MG DAILY PO
     Route: 048
  2. SODIUM FLUORIDE 0.5MG CHEW [Suspect]
     Indication: MINERAL SUPPLEMENTATION
     Dosage: 0.5 MG DAILY PO
     Route: 048
  3. SODIUM FLUORIDE 0.5MG CHEW [Suspect]
     Indication: PROPHYLAXIS
     Dosage: 0.5 MG DAILY PO
     Route: 048

REACTIONS (2)
  - TABLET PHYSICAL ISSUE [None]
  - PRODUCT SUBSTITUTION ISSUE [None]
